FAERS Safety Report 6239599-1 (Version None)
Quarter: 2009Q2

REPORT INFORMATION
  Report Type: 
  Country: None (occurrence: None)
  Receive Date: 20090619
  Receipt Date: 20090605
  Transmission Date: 20091009
  Serious: Yes (Death)
  Sender: FDA-Public Use
  Company Number: POMP-1000629

PATIENT
  Sex: Female

DRUGS (1)
  1. MYOZYME [Suspect]
     Indication: GLYCOGEN STORAGE DISEASE TYPE II
     Dosage: 20 MG/KG Q2W
     Dates: start: 20090201

REACTIONS (3)
  - INFECTION [None]
  - MULTI-ORGAN FAILURE [None]
  - SEPSIS [None]
